FAERS Safety Report 5945736-6 (Version None)
Quarter: 2008Q4

REPORT INFORMATION
  Report Type: 
  Country: None (occurrence: None)
  Receive Date: 20081105
  Receipt Date: 20081027
  Transmission Date: 20090506
  Serious: Yes (Death, Hospitalization)
  Sender: FDA-Public Use
  Company Number: 2008-04017

PATIENT
  Age: 73 Year
  Sex: Female

DRUGS (4)
  1. VELCADE [Suspect]
     Indication: MULTIPLE MYELOMA
     Dosage: 2.2 MG, INTRAVENOUS
     Route: 042
     Dates: start: 20071105, end: 20071224
  2. CNT 0328(CNT0328) VIAL [Suspect]
     Indication: MULTIPLE MYELOMA
     Dosage: 250 MG, INRAVENOUS
     Route: 042
     Dates: start: 20071105, end: 20080609
  3. PLACEBO() [Suspect]
     Indication: MULTIPLE MYELOMA
     Dosage: 250 MG, INTRAVEOUS
     Route: 042
     Dates: start: 20071105, end: 20080609
  4. DEXAMETHASONE TAB [Suspect]
     Indication: DRUG USE FOR UNKNOWN INDICATION
     Dosage: ORAL
     Route: 048

REACTIONS (2)
  - CHOLECYSTITIS ACUTE [None]
  - PANCREATITIS ACUTE [None]
